FAERS Safety Report 5782496-6 (Version None)
Quarter: 2008Q2

REPORT INFORMATION
  Report Type: 
  Country: None (occurrence: None)
  Receive Date: 20080623
  Receipt Date: 20080611
  Transmission Date: 20081010
  Serious: Yes (Other)
  Sender: FDA-Public Use
  Company Number: GB-PFIZER INC-2008047618

PATIENT
  Sex: Male
  Weight: 58 kg

DRUGS (1)
  1. CHANTIX [Suspect]
     Indication: SMOKING CESSATION THERAPY
     Route: 048
     Dates: start: 20080428, end: 20080526

REACTIONS (2)
  - DYSGEUSIA [None]
  - HAEMOPTYSIS [None]
